FAERS Safety Report 10616053 (Version 1)
Quarter: 2014Q4

REPORT INFORMATION
  Report Type: Report from Study
  Country: IT (occurrence: IT)
  Receive Date: 20141201
  Receipt Date: 20141201
  Transmission Date: 20150529
  Serious: Yes (Other)
  Sender: FDA-Public Use
  Company Number: IT-PFIZER INC-2014325925

PATIENT
  Age: 72 Year
  Sex: Male

DRUGS (1)
  1. AXITINIB [Suspect]
     Active Substance: AXITINIB
     Indication: CLEAR CELL RENAL CELL CARCINOMA
     Dosage: 5 MG, 2X/DAY
     Dates: start: 20120912

REACTIONS (8)
  - Decreased appetite [Unknown]
  - Fluid intake reduced [Unknown]
  - Nausea [Unknown]
  - Renal impairment [Unknown]
  - Mouth haemorrhage [Recovering/Resolving]
  - Diarrhoea [Unknown]
  - Thrombocytopenia [Unknown]
  - Asthenia [Unknown]

NARRATIVE: CASE EVENT DATE: 2012
